FAERS Safety Report 8688189 (Version 2)
Quarter: 2015Q1

REPORT INFORMATION
  Report Type: Report from Study
  Country: US (occurrence: US)
  Receive Date: 20120727
  Receipt Date: 20150211
  Transmission Date: 20150721
  Serious: Yes (Other)
  Sender: FDA-Public Use
  Company Number: US-ROCHE-1092718

PATIENT
  Sex: Male

DRUGS (12)
  1. ALBUTEROL. [Concomitant]
     Active Substance: ALBUTEROL
     Dosage: PRN
     Route: 065
  2. XOLAIR [Suspect]
     Active Substance: OMALIZUMAB
     Route: 058
  3. ZYFLO [Concomitant]
     Active Substance: ZILEUTON
     Route: 065
  4. PULMICORT FLEXHALER [Concomitant]
     Active Substance: BUDESONIDE
  5. MEDROL [Concomitant]
     Active Substance: METHYLPREDNISOLONE
     Dosage: PRN
     Route: 065
  6. SINGULAIR [Concomitant]
     Active Substance: MONTELUKAST SODIUM
     Route: 065
  7. FLONASE (UNITED STATES) [Concomitant]
     Dosage: 2 SPRAY
     Route: 065
  8. PREDNISONE. [Concomitant]
     Active Substance: PREDNISONE
  9. ADVAIR HFA [Concomitant]
     Active Substance: FLUTICASONE PROPIONATE\SALMETEROL XINAFOATE
     Dosage: 250-50
     Route: 065
  10. XOLAIR [Suspect]
     Active Substance: OMALIZUMAB
     Indication: ASTHMA
     Route: 058
  11. VALTREX [Concomitant]
     Active Substance: VALACYCLOVIR HYDROCHLORIDE
     Route: 065
  12. ASTELIN (UNITED STATES) [Concomitant]

REACTIONS (10)
  - Mouth breathing [Unknown]
  - Anxiety [Unknown]
  - Hypersensitivity [Unknown]
  - Middle insomnia [Unknown]
  - Dyspnoea [Unknown]
  - Asthma [Unknown]
  - Chronic sinusitis [Unknown]
  - Ear infection [Unknown]
  - Wheezing [Unknown]
  - Nasal congestion [Unknown]
